FAERS Safety Report 9560211 (Version 1)
Quarter: 2013Q3

REPORT INFORMATION
  Report Type: Spontaneous
  Country: US (occurrence: None)
  Receive Date: 20130909
  Receipt Date: 20130909
  Transmission Date: 20140515
  Serious: Yes (Other)
  Sender: FDA-Public Use
  Company Number: 380617

PATIENT
  Age: 49 Year
  Sex: Male

DRUGS (15)
  1. VICTOZA (LIRAGLUTIDE) SOLUTION FOR INJECTION, 6MG/ML [Suspect]
     Indication: DIABETES MELLITUS
     Dosage: UNK, SUBCUTANEOUS
     Route: 058
  2. NOVOFINE 32 (NEEDLE) [Concomitant]
  3. METFORMIN HCL (METFORMIN HYDROCHLORIDE) [Concomitant]
  4. NITROSTAT (GLYCERYL TRINITRATE) [Concomitant]
  5. PRILOSEC /00661201/ (OMEPRAZOLE) [Concomitant]
  6. NORVASC (AMLODIPINE BESILATE) [Concomitant]
  7. ASPIRIN (ACETYLSALICYLIC ACID) [Concomitant]
  8. CARVEDILOL (CARVEDILOL) [Concomitant]
  9. VICODIN (HYDROCODONE BITARTRATE, PARACETAMOL) [Concomitant]
  10. BUSPIRONE HCL (BUSPIRONE HYDROCHLORIDE) [Concomitant]
  11. FUROSEMIDE (FUROSEMIDE) [Concomitant]
  12. LOSARTAN POTASSIUM AND HYDROCHLOROTHIAZIDE (HYDROCHLOROTHIAZIDE, LOSARTAN POTASSIUM) [Concomitant]
  13. NIASPAN (NICOTINIC ACID) [Concomitant]
  14. LIPITOR (ATORVASTATIN CALCIUM) [Concomitant]
  15. ALLOPURINOL [Concomitant]

REACTIONS (1)
  - Pancreatitis [None]
